FAERS Safety Report 12659819 (Version 1)
Quarter: 2016Q3

REPORT INFORMATION
  Report Type: Spontaneous
  Country: US (occurrence: US)
  Receive Date: 20160817
  Receipt Date: 20160817
  Transmission Date: 20161109
  Serious: No
  Sender: FDA-Public Use
  Company Number: US-SHIRE-2016DX000030

PATIENT

DRUGS (6)
  1. KALBITOR [Suspect]
     Active Substance: ECALLANTIDE
     Dosage: 30 MG, 2X/DAY:BID
     Route: 058
     Dates: start: 201601, end: 201601
  2. INSULIN [Concomitant]
     Active Substance: INSULIN NOS
     Indication: PRODUCT USED FOR UNKNOWN INDICATION
     Dosage: UNKNOWN
     Route: 065
  3. KALBITOR [Suspect]
     Active Substance: ECALLANTIDE
     Dosage: 30 MG, AS REQ^D
     Route: 058
  4. KALBITOR [Suspect]
     Active Substance: ECALLANTIDE
     Indication: HEREDITARY ANGIOEDEMA
     Dosage: 30 MG, 1X/DAY:QD
     Route: 058
     Dates: start: 20160127, end: 20160127
  5. KALBITOR [Suspect]
     Active Substance: ECALLANTIDE
     Dosage: 30 MG, 2X/DAY:BID
     Route: 058
     Dates: start: 201601
  6. FLUID PILL [Concomitant]
     Indication: PRODUCT USED FOR UNKNOWN INDICATION
     Dosage: UNKNOWN
     Route: 065

REACTIONS (2)
  - Emotional disorder [Unknown]
  - Blood potassium decreased [Unknown]
